FAERS Safety Report 18898141 (Version 2)
Quarter: 2021Q2

REPORT INFORMATION
  Report Type: Spontaneous
  Country: US (occurrence: US)
  Receive Date: 20210216
  Receipt Date: 20210518
  Transmission Date: 20210717
  Serious: No
  Sender: FDA-Public Use
  Company Number: US-CELLTRION INC.-2021US000846

PATIENT

DRUGS (2)
  1. TRUXIMA [Suspect]
     Active Substance: RITUXIMAB-ABBS
     Dosage: 375 MG/M2 (6862 MG), EVERY 8 WEEKS X 6 DOSES PLANNED
     Route: 042
     Dates: start: 20210120
  2. TRUXIMA [Suspect]
     Active Substance: RITUXIMAB-ABBS
     Indication: THROMBOCYTOPENIA
     Dosage: 686.2 MG, (DAY 1, 8, 15, 22)
     Route: 042
     Dates: start: 20201224

REACTIONS (1)
  - Off label use [Not Recovered/Not Resolved]

NARRATIVE: CASE EVENT DATE: 20201224
